FAERS Safety Report 23774884 (Version 3)
Quarter: 2024Q2

REPORT INFORMATION
  Report Type: Spontaneous
  Country: JP (occurrence: JP)
  Receive Date: 20240423
  Receipt Date: 20240607
  Transmission Date: 20240716
  Serious: Yes (Hospitalization)
  Sender: FDA-Public Use
  Company Number: JP-Eisai-202400727_LEN-EC_P_1

PATIENT
  Age: 71 Year
  Sex: Female

DRUGS (2)
  1. LENVIMA [Suspect]
     Active Substance: LENVATINIB
     Indication: Product used for unknown indication
     Dosage: DOSE AND FREQUENCY UNKNOWN
     Route: 048
  2. KEYTRUDA [Concomitant]
     Active Substance: PEMBROLIZUMAB
     Indication: Product used for unknown indication
     Route: 041

REACTIONS (5)
  - Malignant neoplasm progression [Unknown]
  - Dysuria [Unknown]
  - Defaecation disorder [Unknown]
  - Spinal stenosis [Unknown]
  - Immobilisation syndrome [Unknown]

NARRATIVE: CASE EVENT DATE: 20240101
